FAERS Safety Report 16127243 (Version 1)
Quarter: 2019Q1

REPORT INFORMATION
  Report Type: Spontaneous
  Country: US (occurrence: US)
  Receive Date: 20190328
  Receipt Date: 20190328
  Transmission Date: 20190418
  Serious: No
  Sender: FDA-Public Use
  Company Number: US-BIOGEN-2019BI00708681

PATIENT
  Sex: Female

DRUGS (1)
  1. PLEGRIDY [Suspect]
     Active Substance: PEGINTERFERON BETA-1A
     Indication: MULTIPLE SCLEROSIS
     Route: 058
     Dates: start: 20190109

REACTIONS (5)
  - Overweight [Unknown]
  - Injection site bruising [Not Recovered/Not Resolved]
  - Device malfunction [Unknown]
  - Fat tissue increased [Unknown]
  - Injection site pain [Unknown]
